APPROVED DRUG PRODUCT: IRBESARTAN
Active Ingredient: IRBESARTAN
Strength: 300MG
Dosage Form/Route: TABLET;ORAL
Application: A203534 | Product #003 | TE Code: AB
Applicant: JUBILANT GENERICS LTD
Approved: Feb 23, 2015 | RLD: No | RS: No | Type: RX